FAERS Safety Report 21017677 (Version 9)
Quarter: 2023Q1

REPORT INFORMATION
  Report Type: Report from Study
  Country: SG (occurrence: SG)
  Receive Date: 20220628
  Receipt Date: 20230207
  Transmission Date: 20230417
  Serious: Yes (Hospitalization)
  Sender: FDA-Public Use
  Company Number: SG-PFIZER INC-PV202200009918

PATIENT
  Age: 68 Year
  Sex: Female
  Weight: 57 kg

DRUGS (9)
  1. PALBOCICLIB [Suspect]
     Active Substance: PALBOCICLIB
     Indication: Breast cancer metastatic
     Dosage: 125 MG, 1X/DAY [DATE OF MOST RECENT DOSE OF STUDY DRUG PRIOR TO AE
     Route: 048
     Dates: start: 20211130
  2. FULVESTRANT [Suspect]
     Active Substance: FULVESTRANT
     Indication: Breast cancer metastatic
     Dosage: 500 MG, MONTHLY [DATE OF MOST RECENT DOSE OF STUDY DRUG PRIOR TO AE
     Route: 030
     Dates: start: 20211130
  3. PLACEBO [Suspect]
     Active Substance: UNSPECIFIED INGREDIENT
     Indication: Breast cancer metastatic
     Dosage: UNK, 1X/DAY [DATE OF MOST RECENT DOSE OF STUDY DRUG PRIOR TO AE 22MAY2022 (1 IN 1 D)]
     Route: 048
     Dates: start: 20211130
  4. CHOLECALCIFEROL [Concomitant]
     Active Substance: CHOLECALCIFEROL
     Indication: Prophylaxis
     Dosage: 1 DF, 1X/DAY (1 DF,1 IN 1 D)
     Route: 048
     Dates: start: 20211130, end: 20220909
  5. CALCIUM CARBONATE [Concomitant]
     Active Substance: CALCIUM CARBONATE
     Indication: Prophylaxis
     Dosage: 1250 MG, 1X/DAY (1250 MG,1 IN 1 D)
     Route: 048
     Dates: start: 20211130, end: 20220909
  6. CODEINE PHOSPHATE\PROMETHAZINE HYDROCHLORIDE [Concomitant]
     Active Substance: CODEINE PHOSPHATE\PROMETHAZINE HYDROCHLORIDE
     Indication: Prophylaxis
     Dosage: 10 ML, AS NEEDED (10 ML,1 IN 1 AS REQUIRED) (LIQUID)
     Route: 048
     Dates: start: 20220125
  7. FEXOFENADINE [Concomitant]
     Active Substance: FEXOFENADINE HYDROCHLORIDE
     Indication: Prophylaxis
     Dosage: 180 MG, 1X/DAY (180 MG,1 IN 1 D)
     Route: 048
     Dates: start: 20220215
  8. ORACORT E [Concomitant]
     Indication: Prophylaxis
     Dosage: UNK, AS NEEDED [1 IN 1 AS REQUIRED (OTHER)]
     Route: 061
     Dates: start: 20211130
  9. PROMETHAZINE HYDROCHLORIDE [Concomitant]
     Active Substance: PROMETHAZINE HYDROCHLORIDE
     Indication: COVID-19
     Dosage: 10 ML, AS NEEDED [10 ML,1 IN 1 AS REQUIRED (LIQUID)]
     Route: 048
     Dates: start: 20220527, end: 20220616

REACTIONS (1)
  - Hypertransaminasaemia [Recovered/Resolved]

NARRATIVE: CASE EVENT DATE: 20220616
